FAERS Safety Report 10074178 (Version 2)
Quarter: 2016Q2

REPORT INFORMATION
  Report Type: Spontaneous
  Country: US (occurrence: US)
  Receive Date: 20140411
  Receipt Date: 20160406
  Transmission Date: 20160815
  Serious: No
  Sender: FDA-Public Use
  Company Number: US-SA-2014SA033376

PATIENT
  Age: 77 Year
  Sex: Male
  Weight: 72.57 kg

DRUGS (3)
  1. FLUTICASONE [Concomitant]
     Active Substance: FLUTICASONE\FLUTICASONE PROPIONATE
     Indication: SINUS CONGESTION
     Dosage: 1 SPRAY
     Dates: start: 201401
  2. ALLEGRA-D [Suspect]
     Active Substance: FEXOFENADINE\PSEUDOEPHEDRINE
     Indication: SINUS CONGESTION
     Route: 048
     Dates: start: 201401, end: 201401
  3. AZELASTINE [Concomitant]
     Active Substance: AZELASTINE
     Indication: SINUS CONGESTION
     Dosage: 1 SPRAY IN NOSTRIL
     Dates: start: 201401

REACTIONS (1)
  - Sleep disorder [Not Recovered/Not Resolved]
